FAERS Safety Report 17116985 (Version 1)
Quarter: 2019Q4

REPORT INFORMATION
  Report Type: Report from Study
  Country: DE (occurrence: DE)
  Receive Date: 20191205
  Receipt Date: 20191205
  Transmission Date: 20200122
  Serious: Yes (Other)
  Sender: FDA-Public Use
  Company Number: PHHY2015DE071078

PATIENT
  Sex: Female

DRUGS (1)
  1. GILENYA [Suspect]
     Active Substance: FINGOLIMOD HYDROCHLORIDE
     Indication: MULTIPLE SCLEROSIS
     Dosage: UNK, QD
     Route: 048
     Dates: start: 20150126

REACTIONS (10)
  - Lymphopenia [Recovered/Resolved]
  - Fluid retention [Unknown]
  - Lymphocyte count decreased [Unknown]
  - Arthralgia [Recovered/Resolved]
  - Oral herpes [Unknown]
  - White blood cell count decreased [Unknown]
  - Vitamin D deficiency [Recovered/Resolved]
  - Sensory disturbance [Unknown]
  - Dyspepsia [Unknown]
  - Paraesthesia [Unknown]

NARRATIVE: CASE EVENT DATE: 20160420
